FAERS Safety Report 20491274 (Version 1)
Quarter: 2022Q1

REPORT INFORMATION
  Report Type: Spontaneous
  Country: DE (occurrence: DE)
  Receive Date: 20220218
  Receipt Date: 20220218
  Transmission Date: 20220423
  Serious: Yes (Other)
  Sender: FDA-Public Use
  Company Number: DE-PFIZER INC-202200237992

PATIENT
  Age: 43 Year
  Sex: Female

DRUGS (1)
  1. ACCUPRO [Suspect]
     Active Substance: QUINAPRIL HYDROCHLORIDE

REACTIONS (1)
  - Coeliac disease [Unknown]
